FAERS Safety Report 11276781 (Version 2)
Quarter: 2015Q3

REPORT INFORMATION
  Report Type: Spontaneous
  Country: DE (occurrence: DE)
  Receive Date: 20150716
  Receipt Date: 20150728
  Transmission Date: 20151125
  Serious: Yes (Hospitalization)
  Sender: FDA-Public Use
  Company Number: DE-PFIZER INC-2015198956

PATIENT
  Age: 65 Year
  Sex: Female

DRUGS (3)
  1. IDEOS [Concomitant]
     Active Substance: CALCIUM CARBONATE\CHOLECALCIFEROL
     Dosage: UNK
  2. FRAGMIN P FORTE [Suspect]
     Active Substance: DALTEPARIN SODIUM
     Indication: HEART VALVE REPLACEMENT
     Dosage: UNK, 1X/DAY
     Route: 058
     Dates: start: 200504
  3. OMEPRAZOLE. [Concomitant]
     Active Substance: OMEPRAZOLE
     Dosage: UNK

REACTIONS (5)
  - Off label use [Unknown]
  - Synovitis [Not Recovered/Not Resolved]
  - Musculoskeletal pain [Not Recovered/Not Resolved]
  - Synovial disorder [Unknown]
  - Arthralgia [Not Recovered/Not Resolved]

NARRATIVE: CASE EVENT DATE: 2005
